FAERS Safety Report 16992512 (Version 1)
Quarter: 2019Q4

REPORT INFORMATION
  Report Type: Spontaneous
  Country: US (occurrence: US)
  Receive Date: 20191104
  Receipt Date: 20191104
  Transmission Date: 20200122
  Serious: Yes (Other)
  Sender: FDA-Public Use
  Company Number: None

PATIENT

DRUGS (1)
  1. CARVEDILOL 20 MG [Suspect]
     Active Substance: CARVEDILOL

REACTIONS (1)
  - Malaise [None]
